FAERS Safety Report 10330343 (Version 2)
Quarter: 2014Q3

REPORT INFORMATION
  Report Type: Spontaneous
  Country: US (occurrence: US)
  Receive Date: 20140722
  Receipt Date: 20140723
  Transmission Date: 20150326
  Serious: Yes (Other)
  Sender: FDA-Public Use
  Company Number: US-ROCHE-1438370

PATIENT
  Age: 61 Year
  Sex: Female
  Weight: 93.07 kg

DRUGS (17)
  1. XOLAIR [Suspect]
     Active Substance: OMALIZUMAB
     Indication: ASTHMA
     Route: 065
     Dates: start: 20140330, end: 20140709
  2. LEVOCETIRIZINE [Concomitant]
     Active Substance: LEVOCETIRIZINE
     Dosage: 30
     Route: 048
     Dates: start: 20140619
  3. ARMOUR THYROID [Concomitant]
     Active Substance: THYROID, PORCINE\THYROID, UNSPECIFIED
     Route: 048
     Dates: start: 20140524
  4. LEVOCETIRIZINE [Concomitant]
     Active Substance: LEVOCETIRIZINE
     Dosage: 30
     Route: 048
     Dates: start: 20140619
  5. LEVOCETIRIZINE [Concomitant]
     Active Substance: LEVOCETIRIZINE
     Dosage: 90
     Route: 048
  6. SYMBICORT [Concomitant]
     Active Substance: BUDESONIDE\FORMOTEROL FUMARATE DIHYDRATE
     Dosage: 160-4.5 MCG/ACTUATION , 2 PUFF EVERY 12 HOURS?3
     Route: 055
     Dates: start: 20140626
  7. AZELASTINE [Concomitant]
     Active Substance: AZELASTINE
     Dosage: 1 SPUIRTS EACH NOSTRIL EVERY 12 HOURS AS NEEDED
     Route: 065
     Dates: start: 20140626
  8. AZELASTINE [Concomitant]
     Active Substance: AZELASTINE
     Dosage: 2 SPUIRTS EACH NOSTRIL EVERY 12 HOURS AS NEEDED?3
     Route: 065
     Dates: start: 20140626
  9. XOPENEX HFA [Concomitant]
     Active Substance: LEVALBUTEROL TARTRATE
     Dosage: 45 MCG/ACTUATION, 2 INHALATION EVERY 6 HOURS AS NEEDED
     Route: 065
  10. LEVOCETIRIZINE [Concomitant]
     Active Substance: LEVOCETIRIZINE
     Dosage: 30
     Route: 048
     Dates: start: 20140717
  11. LOVAZA [Concomitant]
     Active Substance: OMEGA-3-ACID ETHYL ESTERS
     Dosage: 360
     Route: 048
     Dates: start: 20130709
  12. TRILIPIX [Concomitant]
     Active Substance: FENOFIBRIC ACID
     Dosage: 90
     Route: 048
     Dates: start: 20130709
  13. AMLODIPINE [Concomitant]
     Active Substance: AMLODIPINE BESYLATE
     Route: 048
     Dates: start: 20140314
  14. ESTRADIOL. [Concomitant]
     Active Substance: ESTRADIOL
     Dosage: 0.1 MG PER 24 HR?4
     Route: 062
     Dates: start: 20131003
  15. GABAPENTIN. [Concomitant]
     Active Substance: GABAPENTIN
     Dosage: 60
     Route: 048
     Dates: start: 20130701
  16. LEVOCETIRIZINE [Concomitant]
     Active Substance: LEVOCETIRIZINE
     Dosage: 90
     Route: 048
     Dates: start: 20130705
  17. METFORMIN [Concomitant]
     Active Substance: METFORMIN HYDROCHLORIDE
     Dosage: 180
     Route: 048
     Dates: start: 20140610

REACTIONS (1)
  - VIIth nerve paralysis [Recovering/Resolving]

NARRATIVE: CASE EVENT DATE: 20140709
